FAERS Safety Report 23963262 (Version 1)
Quarter: 2024Q2

REPORT INFORMATION
  Report Type: Spontaneous
  Country: US (occurrence: US)
  Receive Date: 20240611
  Receipt Date: 20240611
  Transmission Date: 20240716
  Serious: No
  Sender: FDA-Public Use
  Company Number: US-RIGEL PHARMACEUTICALS, INC.-2023FOS001084

PATIENT
  Sex: Female

DRUGS (1)
  1. TAVALISSE [Suspect]
     Active Substance: FOSTAMATINIB
     Indication: Peripheral swelling
     Dosage: 100 MG, BID
     Route: 048
     Dates: end: 202309

REACTIONS (2)
  - White blood cell count decreased [Unknown]
  - Off label use [Unknown]
